FAERS Safety Report 11444090 (Version 1)
Quarter: 2015Q3

REPORT INFORMATION
  Report Type: Report from Study
  Country: US (occurrence: US)
  Receive Date: 20150901
  Receipt Date: 20150901
  Transmission Date: 20151125
  Serious: No
  Sender: FDA-Public Use
  Company Number: US-AMGEN-USASL2015088162

PATIENT
  Age: 32 Year
  Sex: Female

DRUGS (1)
  1. ENBREL [Suspect]
     Active Substance: ETANERCEPT
     Indication: RHEUMATOID ARTHRITIS
     Dosage: 50 MG, QWK
     Route: 065

REACTIONS (7)
  - Injection site haemorrhage [Unknown]
  - Injection site swelling [Unknown]
  - Injection site erythema [Unknown]
  - Arthritis [Unknown]
  - Injection site reaction [Unknown]
  - Injection site pain [Unknown]
  - Condition aggravated [Unknown]
